FAERS Safety Report 5771589-5 (Version None)
Quarter: 2008Q2

REPORT INFORMATION
  Report Type: 
  Country: None (occurrence: None)
  Receive Date: 20080613
  Receipt Date: 20080606
  Transmission Date: 20081010
  Serious: Yes (Hospitalization, Other)
  Sender: FDA-Public Use
  Company Number: HQWYE342422JUL04

PATIENT
  Sex: Female
  Weight: 88.53 kg

DRUGS (13)
  1. PREMARIN [Suspect]
     Dosage: UNKNOWN
     Dates: start: 19920101, end: 19990101
  2. PREMPRO [Suspect]
  3. MEDROXYPROGESTERONE [Suspect]
  4. ESTRADIOL [Suspect]
  5. VIVELLE [Suspect]
  6. ESTRIOL [Suspect]
  7. VAGIFEM [Suspect]
  8. TESTOSTERONE [Suspect]
  9. PROGESTERONE [Suspect]
  10. ORTHO TRI-CYCLEN [Suspect]
  11. COMBIPATCH [Suspect]
  12. PROVERA [Suspect]
     Dosage: UNKNOWN
     Dates: start: 19920101, end: 19990101
  13. PROMETRIUM [Suspect]

REACTIONS (1)
  - BREAST CANCER METASTATIC [None]
